FAERS Safety Report 4853742-8 (Version None)
Quarter: 2005Q4

REPORT INFORMATION
  Report Type: 
  Country: None (occurrence: None)
  Receive Date: 20051212
  Receipt Date: 20051201
  Transmission Date: 20060501
  Serious: Yes (Other)
  Sender: FDA-Public Use
  Company Number: 2005164248

PATIENT
  Age: 16 Year
  Sex: Female

DRUGS (5)
  1. GEODON [Suspect]
     Indication: MOOD SWINGS
     Dosage: 240 MG, ORAL
     Route: 048
     Dates: start: 20041101
  2. CELEXA [Concomitant]
  3. SEROQUEL [Concomitant]
  4. LEXAPRO [Concomitant]
  5. TOPAMAX [Concomitant]

REACTIONS (2)
  - RENAL FAILURE [None]
  - WEIGHT INCREASED [None]
